FAERS Safety Report 25305308 (Version 1)
Quarter: 2025Q2

REPORT INFORMATION
  Report Type: Spontaneous
  Country: US (occurrence: None)
  Receive Date: 20250513
  Receipt Date: 20250513
  Transmission Date: 20250717
  Serious: No
  Sender: FDA-CTU
  Company Number: None

PATIENT
  Age: 67 Year
  Sex: Male

DRUGS (2)
  1. HYDROMORPHONE HCL [Suspect]
     Active Substance: HYDROMORPHONE HYDROCHLORIDE
     Indication: Pain
     Dates: start: 20241104, end: 20241104
  2. DIAZEPAM [Suspect]
     Active Substance: DIAZEPAM
     Dates: start: 20241104, end: 20241104

REACTIONS (3)
  - Cardiac arrest [None]
  - Hypotension [None]
  - Respiratory depression [None]

NARRATIVE: CASE EVENT DATE: 20241104
